FAERS Safety Report 7777633-8 (Version None)
Quarter: 2011Q3

REPORT INFORMATION
  Report Type: 
  Country: None (occurrence: None)
  Receive Date: 20110926
  Receipt Date: 20110913
  Transmission Date: 20111222
  Serious: No
  Sender: FDA-Public Use
  Company Number: US-B.I. PHARMACEUTICALS,INC./RIDGEFIELD-2011-BP-22168BP

PATIENT
  Sex: Female

DRUGS (6)
  1. SPIRIVA [Suspect]
     Dosage: 18 MCG
     Route: 055
     Dates: start: 20100101
  2. FIORINAL [Concomitant]
     Indication: MIGRAINE
     Route: 048
     Dates: start: 19920101
  3. PHENOBARBITAL TAB [Concomitant]
     Indication: CONVULSION
     Dosage: 129.6 MG
     Route: 048
     Dates: start: 19920101
  4. LASIX [Concomitant]
     Indication: GENERALISED OEDEMA
     Dosage: 40 MG
     Route: 048
     Dates: start: 19780101
  5. SERAX [Concomitant]
     Indication: ALCOHOLISM
     Dosage: 30 MG
     Route: 048
     Dates: start: 19920101
  6. POTASSIUM [Concomitant]
     Indication: BLOOD POTASSIUM DECREASED
     Dosage: 40 MG
     Route: 048
     Dates: start: 19780101

REACTIONS (1)
  - HEPATIC ENZYME INCREASED [None]
